FAERS Safety Report 19938016 (Version 1)
Quarter: 2021Q4

REPORT INFORMATION
  Report Type: Other
  Country: US (occurrence: US)
  Receive Date: 20211011
  Receipt Date: 20211011
  Transmission Date: 20220303
  Serious: Yes (Hospitalization)
  Sender: FDA-Public Use
  Company Number: US-ROCHE-2685083

PATIENT
  Age: 84 Year
  Sex: Male

DRUGS (9)
  1. VEMURAFENIB [Suspect]
     Active Substance: VEMURAFENIB
     Indication: Hairy cell leukaemia
     Route: 048
  2. VEMURAFENIB [Suspect]
     Active Substance: VEMURAFENIB
     Route: 048
  3. RITUXIMAB [Concomitant]
     Active Substance: RITUXIMAB
     Indication: Hairy cell leukaemia
     Route: 065
  4. CLADRIBINE [Concomitant]
     Active Substance: CLADRIBINE
     Indication: Hairy cell leukaemia
  5. DILTIAZEM [Concomitant]
     Active Substance: DILTIAZEM
  6. TAMSULOSIN [Concomitant]
     Active Substance: TAMSULOSIN
  7. LOVASTATIN [Concomitant]
     Active Substance: LOVASTATIN
  8. WARFARIN [Concomitant]
     Active Substance: WARFARIN
  9. RITUXIMAB [Concomitant]
     Active Substance: RITUXIMAB
     Indication: Hairy cell leukaemia
     Route: 042

REACTIONS (1)
  - Pancreatitis [Recovered/Resolved]
